FAERS Safety Report 13753335 (Version 1)
Quarter: 2017Q3

REPORT INFORMATION
  Report Type: Report from Study
  Country: None (occurrence: US)
  Receive Date: 20170714
  Receipt Date: 20170714
  Transmission Date: 20171127
  Serious: Yes (Other)
  Sender: FDA-Public Use
  Company Number: US-IPSEN BIOPHARMACEUTICALS, INC.-2010-4374

PATIENT
  Age: 12 Year
  Sex: Male

DRUGS (6)
  1. INCRELEX [Suspect]
     Active Substance: MECASERMIN
     Route: 058
     Dates: start: 20081127, end: 20081210
  2. INCRELEX [Suspect]
     Active Substance: MECASERMIN
     Indication: INSULIN-LIKE GROWTH FACTOR DECREASED
     Route: 058
     Dates: start: 20090827, end: 20091205
  3. INCRELEX [Suspect]
     Active Substance: MECASERMIN
     Route: 058
     Dates: start: 20080507, end: 20080923
  4. INCRELEX [Suspect]
     Active Substance: MECASERMIN
     Route: 058
     Dates: start: 20081211, end: 20090826
  5. INCRELEX [Suspect]
     Active Substance: MECASERMIN
     Route: 058
     Dates: start: 20080409, end: 20080506
  6. INCRELEX [Suspect]
     Active Substance: MECASERMIN
     Route: 058
     Dates: start: 20081113, end: 20081126

REACTIONS (1)
  - Idiopathic intracranial hypertension [None]

NARRATIVE: CASE EVENT DATE: 20091202
